FAERS Safety Report 25421312 (Version 1)
Quarter: 2025Q2

REPORT INFORMATION
  Report Type: Spontaneous
  Country: SK (occurrence: SK)
  Receive Date: 20250611
  Receipt Date: 20250611
  Transmission Date: 20250716
  Serious: Yes (Other)
  Sender: CELLTRION
  Company Number: SK-AMGEN-SVKSP2024250233

PATIENT

DRUGS (3)
  1. ADALIMUMAB [Suspect]
     Active Substance: ADALIMUMAB
     Indication: Juvenile idiopathic arthritis
     Route: 065
  2. ADALIMUMAB [Suspect]
     Active Substance: ADALIMUMAB
     Route: 065
  3. CORTICOSTEROID NOS [Concomitant]
     Active Substance: CORTICOSTEROID NOS
     Indication: Juvenile idiopathic arthritis

REACTIONS (4)
  - Juvenile idiopathic arthritis [Recovering/Resolving]
  - Osteomyelitis chronic [Recovering/Resolving]
  - Maternal exposure during pregnancy [Unknown]
  - Product use issue [Unknown]
